FAERS Safety Report 5401452-0 (Version None)
Quarter: 2007Q3

REPORT INFORMATION
  Report Type: 
  Country: None (occurrence: None)
  Receive Date: 20070726
  Receipt Date: 20070709
  Transmission Date: 20080115
  Serious: Yes (Hospitalization)
  Sender: FDA-Public Use
  Company Number: 2007JP002625

PATIENT
  Age: 84 Year
  Sex: Female
  Weight: 71 kg

DRUGS (8)
  1. VESICARE [Suspect]
     Indication: HYPERTONIC BLADDER
     Dosage: 10 MG, UID/QD, ORAL
     Route: 048
     Dates: end: 20070115
  2. GASTER D ORODISPERSABLE CR TABLET [Concomitant]
  3. LIPITOR [Concomitant]
  4. AMLODIPINE BESYLATE [Concomitant]
  5. ASPIRIN [Concomitant]
  6. BLOPRESS (CANDESARTAN CILEXETIL) [Concomitant]
  7. LASIX [Concomitant]
  8. ALFAROL (ALFACALCIDOL) [Concomitant]

REACTIONS (3)
  - PYREXIA [None]
  - UPPER RESPIRATORY TRACT INFLAMMATION [None]
  - URINARY RETENTION [None]
